FAERS Safety Report 10456722 (Version 5)
Quarter: 2015Q1

REPORT INFORMATION
  Report Type: Spontaneous
  Country: US (occurrence: US)
  Receive Date: 20140916
  Receipt Date: 20150128
  Transmission Date: 20150720
  Serious: No
  Sender: FDA-Public Use
  Company Number: US-PFIZER INC-2014253261

PATIENT
  Age: 59 Year
  Sex: Female

DRUGS (1)
  1. XELJANZ [Suspect]
     Active Substance: TOFACITINIB CITRATE
     Dosage: UNK
     Dates: start: 20140502

REACTIONS (5)
  - Pain in extremity [Unknown]
  - Oropharyngeal pain [Recovered/Resolved]
  - Drug dose omission [Unknown]
  - Chest pain [Unknown]
  - Musculoskeletal pain [Unknown]
